FAERS Safety Report 7725218-1 (Version None)
Quarter: 2011Q3

REPORT INFORMATION
  Report Type: 
  Country: None (occurrence: None)
  Receive Date: 20110901
  Receipt Date: 20110823
  Transmission Date: 20111222
  Serious: Yes (Hospitalization, Other)
  Sender: FDA-Public Use
  Company Number: US-RB-018833-10

PATIENT
  Age: 44 Year
  Sex: Female

DRUGS (6)
  1. SUBUTEX [Suspect]
     Dosage: UNKNOWN DOSING DETAILS
     Route: 065
     Dates: start: 20090101, end: 20101001
  2. SUBOXONE [Suspect]
     Indication: PRODUCT USED FOR UNKNOWN INDICATION
     Dosage: DOSING INFORMATION UNKNOWN
     Route: 065
  3. SUBOXONE [Suspect]
     Dosage: TAKING SUBOXONE TABLET AT DOSE STARTING AT 1/2 MG TO 3 MG
     Route: 065
  4. SUBUTEX [Suspect]
     Indication: MIGRAINE
     Route: 060
     Dates: start: 20090101, end: 20101001
  5. OXYCODONE HCL [Suspect]
     Indication: PRODUCT USED FOR UNKNOWN INDICATION
     Dosage: DOSAGE DETAILS UNKNOWN AT THIS TIME
  6. SUBUTEX [Suspect]
     Indication: DRUG DEPENDENCE
     Dosage: UNKNOWN DOSING DETAILS
     Route: 065
     Dates: start: 20101201

REACTIONS (8)
  - EMOTIONAL POVERTY [None]
  - DRUG DETOXIFICATION [None]
  - ANXIETY [None]
  - SUBSTANCE ABUSE [None]
  - SUICIDAL IDEATION [None]
  - INTENTIONAL DRUG MISUSE [None]
  - DRUG WITHDRAWAL SYNDROME [None]
  - NAUSEA [None]
